FAERS Safety Report 6533900-7 (Version None)
Quarter: 2010Q1

REPORT INFORMATION
  Report Type: 
  Country: None (occurrence: None)
  Receive Date: 20100111
  Receipt Date: 20090828
  Transmission Date: 20100710
  Serious: No
  Sender: FDA-Public Use
  Company Number: US-ABBOTT-09P-163-0594001-00

PATIENT
  Age: 43 Year
  Sex: Female

DRUGS (2)
  1. VICODIN [Suspect]
     Indication: HEADACHE
  2. FIORICET [Concomitant]
     Indication: HEADACHE
     Dates: start: 20081001

REACTIONS (1)
  - DRUG INEFFECTIVE [None]
